FAERS Safety Report 18554996 (Version 1)
Quarter: 2020Q4

REPORT INFORMATION
  Report Type: Report from Study
  Country: IT (occurrence: IT)
  Receive Date: 20201127
  Receipt Date: 20201127
  Transmission Date: 20210114
  Serious: Yes (Other)
  Sender: FDA-Public Use
  Company Number: IT-JNJFOC-20201142552

PATIENT

DRUGS (3)
  1. SIMPONI [Suspect]
     Active Substance: GOLIMUMAB
     Indication: INFLAMMATORY BOWEL DISEASE
     Route: 058
  2. ADALIMUMAB [Suspect]
     Active Substance: ADALIMUMAB
     Indication: INFLAMMATORY BOWEL DISEASE
     Route: 065
  3. REMICADE [Suspect]
     Active Substance: INFLIXIMAB
     Indication: INFLAMMATORY BOWEL DISEASE
     Route: 042

REACTIONS (17)
  - Anal abscess [Unknown]
  - Fungal infection [Unknown]
  - Nausea [Unknown]
  - Respiratory tract infection [Unknown]
  - Neoplasm prostate [Unknown]
  - Pyrexia [Unknown]
  - Folliculitis [Unknown]
  - Arthralgia [Unknown]
  - Molluscum contagiosum [Unknown]
  - Breast cancer [Unknown]
  - Dermatitis [Unknown]
  - Herpes zoster [Unknown]
  - Hepatic enzyme increased [Unknown]
  - Infusion related reaction [Unknown]
  - Malaise [Unknown]
  - Paradoxical psoriasis [Unknown]
  - Therapeutic response decreased [Unknown]
